FAERS Safety Report 16720374 (Version 1)
Quarter: 2019Q3

REPORT INFORMATION
  Report Type: Spontaneous
  Country: US (occurrence: US)
  Receive Date: 20190702
  Receipt Date: 20190702
  Transmission Date: 20191005
  Serious: Yes (Life-Threatening, Hospitalization, Other)
  Sender: FDA-Public Use
  Company Number: None

PATIENT
  Age: 45 Year
  Sex: Female
  Weight: 45.36 kg

DRUGS (1)
  1. KEPPRA [Suspect]
     Active Substance: LEVETIRACETAM
     Indication: SEIZURE
     Route: 042
     Dates: start: 20190319, end: 20190322

REACTIONS (6)
  - Skin laceration [None]
  - Haemorrhage [None]
  - Taste disorder [None]
  - Seizure [None]
  - Hypoacusis [None]
  - Parosmia [None]

NARRATIVE: CASE EVENT DATE: 20190319
